FAERS Safety Report 18930137 (Version 2)
Quarter: 2021Q4

REPORT INFORMATION
  Report Type: Report from Study
  Country: CA (occurrence: CA)
  Receive Date: 20210223
  Receipt Date: 20211022
  Transmission Date: 20220304
  Serious: Yes (Other)
  Sender: FDA-Public Use
  Company Number: CA-BRISTOL-MYERS SQUIBB COMPANY-BMS-2021-015639

PATIENT
  Age: 62 Year
  Sex: Male

DRUGS (7)
  1. ABATACEPT [Suspect]
     Active Substance: ABATACEPT
     Indication: Rheumatoid arthritis
     Dosage: 125 MILLIGRAM, QWK
     Route: 058
  2. ROSUVASTATIN [Suspect]
     Active Substance: ROSUVASTATIN
     Indication: Product used for unknown indication
     Route: 065
  3. MAGNESIUM [Concomitant]
     Active Substance: MAGNESIUM
     Indication: Product used for unknown indication
     Route: 065
  4. MORNIFLUMATE [Concomitant]
     Active Substance: MORNIFLUMATE
     Indication: Product used for unknown indication
     Route: 065
  5. HYDROXYCHLOROQUINE SULFATE [Concomitant]
     Active Substance: HYDROXYCHLOROQUINE SULFATE
     Indication: Product used for unknown indication
     Route: 065
  6. SERTRALINE [Concomitant]
     Active Substance: SERTRALINE HYDROCHLORIDE
     Indication: Ex-tobacco user
     Route: 065
  7. TYLENOL [Concomitant]
     Active Substance: ACETAMINOPHEN
     Indication: Product used for unknown indication
     Route: 065

REACTIONS (8)
  - Arthralgia [Unknown]
  - Drug ineffective [Unknown]
  - Glaucoma [Unknown]
  - Nasal discomfort [Unknown]
  - Nasopharyngitis [Unknown]
  - Pain in extremity [Unknown]
  - Rheumatoid arthritis [Unknown]
  - Sputum discoloured [Unknown]
